FAERS Safety Report 7257269-8 (Version None)
Quarter: 2011Q1

REPORT INFORMATION
  Report Type: 
  Country: None (occurrence: None)
  Receive Date: 20110129
  Receipt Date: 20100629
  Transmission Date: 20110831
  Serious: No
  Sender: FDA-Public Use
  Company Number: US-ABBOTT-10P-163-0655227-00

PATIENT
  Sex: Female

DRUGS (6)
  1. ZOLOFT [Concomitant]
     Indication: PRODUCT USED FOR UNKNOWN INDICATION
  2. HUMIRA [Suspect]
     Indication: RHEUMATOID ARTHRITIS
     Dosage: RECEIVED TWO INJECTIONS ONLY
     Route: 058
     Dates: start: 20100501, end: 20100501
  3. LORAZEPAM [Concomitant]
     Indication: PRODUCT USED FOR UNKNOWN INDICATION
  4. METHOTREXATE [Suspect]
     Indication: RHEUMATOID ARTHRITIS
     Dates: start: 20100305, end: 20100501
  5. FOLIC ACID [Concomitant]
     Indication: PRODUCT USED FOR UNKNOWN INDICATION
  6. VYVANSE [Concomitant]
     Indication: PRODUCT USED FOR UNKNOWN INDICATION

REACTIONS (8)
  - CONFUSIONAL STATE [None]
  - WEIGHT INCREASED [None]
  - ACNE [None]
  - NERVOUSNESS [None]
  - COUGH [None]
  - BRONCHITIS [None]
  - VISION BLURRED [None]
  - MALAISE [None]
